FAERS Safety Report 6091288-2 (Version None)
Quarter: 2009Q1

REPORT INFORMATION
  Report Type: 
  Country: None (occurrence: None)
  Receive Date: 20090220
  Receipt Date: 20090220
  Transmission Date: 20090719
  Serious: Yes (Other)
  Sender: FDA-Public Use
  Company Number: None

PATIENT
  Age: 58 Year
  Sex: Female

DRUGS (1)
  1. FENTANYL 75MG WATSON [Suspect]
     Indication: PAIN
     Dates: start: 20081202

REACTIONS (4)
  - ABNORMAL BEHAVIOUR [None]
  - DEVICE LEAKAGE [None]
  - DYSPNOEA [None]
  - OVERDOSE [None]
